FAERS Safety Report 22196488 (Version 1)
Quarter: 2023Q2

REPORT INFORMATION
  Report Type: Spontaneous
  Country: IE (occurrence: None)
  Receive Date: 20230411
  Receipt Date: 20230411
  Transmission Date: 20230722
  Serious: Yes (Other)
  Sender: FDA-Public Use
  Company Number: 2023A079672

PATIENT
  Age: 47 Year
  Sex: Male

DRUGS (4)
  1. OLAPARIB [Suspect]
     Active Substance: OLAPARIB
     Route: 048
  2. ROSUVASTATIN [Suspect]
     Active Substance: ROSUVASTATIN
     Route: 048
  3. EZETIMIBE [Suspect]
     Active Substance: EZETIMIBE
  4. FENOFIBRATE [Suspect]
     Active Substance: FENOFIBRATE

REACTIONS (7)
  - Malignant neoplasm progression [Unknown]
  - Hypercholesterolaemia [Unknown]
  - Anaemia [Unknown]
  - Haematocrit decreased [Unknown]
  - Red blood cell count decreased [Unknown]
  - Drug interaction [Unknown]
  - Off label use [Unknown]
